FAERS Safety Report 5287635-1 (Version None)
Quarter: 2007Q1

REPORT INFORMATION
  Report Type: 
  Country: None (occurrence: None)
  Receive Date: 20070103
  Receipt Date: 20060515
  Transmission Date: 20070707
  Serious: Yes (Other)
  Sender: FDA-Public Use
  Company Number: A03200603038

PATIENT
  Sex: Female

DRUGS (1)
  1. DEMEROL [Suspect]

REACTIONS (1)
  - CONVULSION [None]
